FAERS Safety Report 4797991-6 (Version None)
Quarter: 2005Q3

REPORT INFORMATION
  Report Type: 
  Country: None (occurrence: None)
  Receive Date: 20050929
  Receipt Date: 20050819
  Transmission Date: 20060218
  Serious: No
  Sender: FDA-Public Use
  Company Number: 05P-163-0308625

PATIENT
  Age: 57 Year
  Sex: Female
  Weight: 109 kg

DRUGS (16)
  1. HUMIRA [Suspect]
     Indication: RHEUMATOID ARTHRITIS
     Dosage: 40 MG, 1 IN 2 WK, SUBCUTANEOUS
     Route: 058
     Dates: start: 20050816
  2. NOVULOG 70/30 INSULIN [Concomitant]
  3. ISOPHANE INSULIN [Concomitant]
  4. METOPROLOL TARTRATE [Concomitant]
  5. DILTIAZEM HYDROCHLORIDE [Concomitant]
  6. LISINOPRIL [Concomitant]
  7. IRBESARTAN [Concomitant]
  8. ISOSORBIDE MONONITRATE [Concomitant]
  9. ZOCOR [Concomitant]
  10. FUROSEMIDE [Concomitant]
  11. ASPIRIN [Concomitant]
  12. HYDROXYCHLOROQUINE PHOSPHATE [Concomitant]
  13. SULFASALAZINE [Concomitant]
  14. THEOPHYLLINE [Concomitant]
  15. ASAFEX [Concomitant]
  16. NITROGLYCERIN [Concomitant]

REACTIONS (3)
  - BLOOD GLUCOSE INCREASED [None]
  - CHILLS [None]
  - HEADACHE [None]
